FAERS Safety Report 6432235-0 (Version None)
Quarter: 2009Q4

REPORT INFORMATION
  Report Type: 
  Country: None (occurrence: None)
  Receive Date: 20091109
  Receipt Date: 20091028
  Transmission Date: 20100525
  Serious: Yes (Hospitalization)
  Sender: FDA-Public Use
  Company Number: US-MYLANLABS-2009S1018775

PATIENT
  Age: 53 Year
  Sex: Male

DRUGS (2)
  1. FENTANYL TRANSDERMAL SYSTEM [Suspect]
     Indication: BACK PAIN
     Route: 062
  2. PERCOCET [Concomitant]
     Indication: PAIN
     Route: 048

REACTIONS (1)
  - GASTRIC ULCER HAEMORRHAGE [None]
